FAERS Safety Report 16117405 (Version 1)
Quarter: 2019Q2

REPORT INFORMATION
  Report Type: Spontaneous
  Country: US (occurrence: US)
  Receive Date: 20190325
  Receipt Date: 20190325
  Transmission Date: 20190711
  Serious: No
  Sender: FDA-Public Use
  Company Number: None

PATIENT
  Age: 32 Year
  Sex: Male
  Weight: 54 kg

DRUGS (2)
  1. DICFLOFENAC EPOLAMINE TOPICAL PATCH 1.3% [Suspect]
     Active Substance: DICLOFENAC EPOLAMINE
     Indication: RHEUMATOID ARTHRITIS
     Dosage: ?          OTHER STRENGTH:PERCENT;QUANTITY:1 PATCH(ES);?
     Route: 062
     Dates: start: 20190322, end: 20190325
  2. DICFLOFENAC EPOLAMINE TOPICAL PATCH 1.3% [Suspect]
     Active Substance: DICLOFENAC EPOLAMINE
     Indication: PAIN
     Dosage: ?          OTHER STRENGTH:PERCENT;QUANTITY:1 PATCH(ES);?
     Route: 062
     Dates: start: 20190322, end: 20190325

REACTIONS (5)
  - Product substitution issue [None]
  - Device adhesion issue [None]
  - Device difficult to use [None]
  - Application site pain [None]
  - Drug ineffective [None]

NARRATIVE: CASE EVENT DATE: 20190322
